FAERS Safety Report 20297026 (Version 2)
Quarter: 2022Q1

REPORT INFORMATION
  Report Type: Spontaneous
  Country: US (occurrence: US)
  Receive Date: 20220105
  Receipt Date: 20220131
  Transmission Date: 20220423
  Serious: No
  Sender: FDA-Public Use
  Company Number: US-HETERO-HET2021US02359

PATIENT

DRUGS (1)
  1. MONTELUKAST [Suspect]
     Active Substance: MONTELUKAST SODIUM
     Indication: Product used for unknown indication
     Dosage: 5 MG
     Route: 065
     Dates: start: 20211231, end: 20211231

REACTIONS (2)
  - Accidental exposure to product by child [Unknown]
  - No adverse event [Unknown]

NARRATIVE: CASE EVENT DATE: 20211231
